FAERS Safety Report 9822119 (Version 1)
Quarter: 2014Q1

REPORT INFORMATION
  Report Type: Spontaneous
  Country: CA (occurrence: CA)
  Receive Date: 20140116
  Receipt Date: 20140116
  Transmission Date: 20141002
  Serious: Yes (Congenital Anomaly)
  Sender: FDA-Public Use
  Company Number: CA-VIIV HEALTHCARE LIMITED-A1056042A

PATIENT
  Sex: Female
  Weight: 3 kg

DRUGS (11)
  1. RETROVIR [Suspect]
     Indication: PRODUCT USED FOR UNKNOWN INDICATION
     Route: 064
  2. NORVIR [Suspect]
     Indication: PRODUCT USED FOR UNKNOWN INDICATION
     Dosage: 100MG PER DAY
     Route: 064
  3. KALETRA [Suspect]
     Indication: PRODUCT USED FOR UNKNOWN INDICATION
     Dosage: 4U PER DAY
     Route: 064
  4. REYATAZ [Suspect]
     Indication: PRODUCT USED FOR UNKNOWN INDICATION
     Dosage: 300MG PER DAY
     Route: 064
  5. TRUVADA [Suspect]
     Indication: PRODUCT USED FOR UNKNOWN INDICATION
     Dosage: 1TAB PER DAY
     Route: 064
  6. DICLECTIN [Concomitant]
  7. DIMENHYDRINATE [Concomitant]
  8. FOLIC ACID [Concomitant]
  9. HEPATITIS B VACCINE [Concomitant]
  10. MATERNA [Concomitant]
  11. RANITIDINE [Concomitant]

REACTIONS (14)
  - Atelectasis neonatal [Unknown]
  - Coarctation of the aorta [Unknown]
  - Coma scale abnormal [Unknown]
  - Mitral valve incompetence [Unknown]
  - Patent ductus arteriosus [Unknown]
  - Pulmonary hypertension [Unknown]
  - Respiratory failure [Unknown]
  - Tricuspid valve incompetence [Unknown]
  - Cardiomegaly [Unknown]
  - Cardiac murmur [Unknown]
  - Lung disorder [Unknown]
  - Tachypnoea [Unknown]
  - Viral test positive [Unknown]
  - Foetal exposure during pregnancy [Unknown]
